FAERS Safety Report 15856112 (Version 1)
Quarter: 2019Q1

REPORT INFORMATION
  Report Type: Spontaneous
  Country: ES (occurrence: ES)
  Receive Date: 20190123
  Receipt Date: 20190123
  Transmission Date: 20190417
  Serious: Yes (Hospitalization)
  Sender: FDA-Public Use
  Company Number: ES-TEVA-2019-ES-1002571

PATIENT
  Age: 73 Year
  Sex: Female
  Weight: 60 kg

DRUGS (10)
  1. LETROZOLE. [Suspect]
     Active Substance: LETROZOLE
     Indication: BREAST CANCER
     Dosage: LAST PRIOR RO EVENT 27/AUG/2013
     Route: 048
     Dates: start: 20120726, end: 20130926
  2. ATORVASTATIN [Concomitant]
     Active Substance: ATORVASTATIN
     Route: 065
     Dates: start: 20121222
  3. TRASTUZUMAB. [Suspect]
     Active Substance: TRASTUZUMAB
     Indication: BREAST CANCER
     Dosage: LOADING DOSE
     Route: 042
     Dates: start: 20120726, end: 20120726
  4. TRASTUZUMAB. [Suspect]
     Active Substance: TRASTUZUMAB
     Dosage: MAINTENANCE DOSE, START DATE ESTIMATED AS PER FREQUENCY AND AS PER PROTOCOL?DATE OF LAST DOSE PRIOR
     Route: 042
     Dates: start: 20120816, end: 20130926
  5. PERTUZUMAB. [Suspect]
     Active Substance: PERTUZUMAB
     Indication: BREAST CANCER
     Dosage: MAINTENANCE DOSE, START DATE ESTIMATED AS PER FREQUENCY AND AS PER PROTOCOL?DATE OF LAST DOSE PRIOR
     Route: 042
     Dates: start: 20120816, end: 20130926
  6. BARNIDIPINE [Concomitant]
     Active Substance: BARNIDIPINE
  7. RANITIDINE. [Concomitant]
     Active Substance: RANITIDINE
     Route: 065
     Dates: start: 20111222
  8. PERTUZUMAB. [Suspect]
     Active Substance: PERTUZUMAB
     Dosage: LOADING DOSE
     Route: 042
     Dates: start: 20120726, end: 20120726
  9. REPAGLINIDE. [Concomitant]
     Active Substance: REPAGLINIDE
     Route: 065
     Dates: start: 20130110
  10. VALSARTAN HCT [Concomitant]
     Active Substance: HYDROCHLOROTHIAZIDE\VALSARTAN
     Dosage: TOTAL DAILY DOSE: 80/12.5 MG
     Route: 065
     Dates: start: 20130110

REACTIONS (1)
  - Left ventricular dysfunction [Recovered/Resolved]

NARRATIVE: CASE EVENT DATE: 20130827
